FAERS Safety Report 6212181-8 (Version None)
Quarter: 2009Q2

REPORT INFORMATION
  Report Type: 
  Country: None (occurrence: None)
  Receive Date: 20090602
  Receipt Date: 20090521
  Transmission Date: 20091009
  Serious: Yes (Death)
  Sender: FDA-Public Use
  Company Number: JP-SANOFI-SYNTHELABO-A01200905668

PATIENT
  Age: 37 Year
  Sex: Female

DRUGS (2)
  1. ELPLAT [Suspect]
     Indication: OVARIAN CANCER
     Dosage: 145 MG
     Route: 042
     Dates: start: 20090428, end: 20090428
  2. TS-1 [Suspect]
     Indication: OVARIAN CANCER
     Route: 048
     Dates: start: 20090428, end: 20090504

REACTIONS (1)
  - CARDIAC FAILURE [None]
